FAERS Safety Report 21848066 (Version 1)
Quarter: 2023Q1

REPORT INFORMATION
  Report Type: Spontaneous
  Country: US (occurrence: US)
  Receive Date: 20230111
  Receipt Date: 20230111
  Transmission Date: 20230418
  Serious: No
  Sender: FDA-Public Use
  Company Number: US-BEH-2023153905

PATIENT
  Sex: Female

DRUGS (1)
  1. HIZENTRA [Suspect]
     Active Substance: HUMAN IMMUNOGLOBULIN G
     Indication: Hypogammaglobulinaemia
     Dosage: 24 GRAM, QOW
     Route: 058
     Dates: start: 20210728

REACTIONS (9)
  - Peripheral swelling [Unknown]
  - Pain in extremity [Unknown]
  - Injection site swelling [Unknown]
  - Injection site irritation [Unknown]
  - Infusion site pruritus [Unknown]
  - Headache [Unknown]
  - Sinusitis [Unknown]
  - Pyrexia [Recovered/Resolved]
  - Exposure to SARS-CoV-2 [Unknown]
